FAERS Safety Report 6476776-9 (Version None)
Quarter: 2009Q4

REPORT INFORMATION
  Report Type: 
  Country: None (occurrence: None)
  Receive Date: 20091204
  Receipt Date: 20091204
  Transmission Date: 20100525
  Serious: Yes (Hospitalization)
  Sender: FDA-Public Use
  Company Number: None

PATIENT
  Sex: Female
  Weight: 75.45 kg

DRUGS (3)
  1. XELODA [Suspect]
     Dosage: 57000 MG
  2. ERBITUX [Suspect]
     Dosage: 2170 MG
  3. ELOXATIN [Suspect]
     Dosage: 377 MG

REACTIONS (7)
  - CARDIO-RESPIRATORY ARREST [None]
  - DEHYDRATION [None]
  - DIARRHOEA [None]
  - HYPOTENSION [None]
  - METABOLIC ACIDOSIS [None]
  - RENAL FAILURE [None]
  - RESPIRATORY FAILURE [None]
